FAERS Safety Report 11419120 (Version 2)
Quarter: 2015Q4

REPORT INFORMATION
  Report Type: Spontaneous
  Country: US (occurrence: None)
  Receive Date: 20150824
  Receipt Date: 20151019
  Transmission Date: 20160304
  Serious: Yes (Other)
  Sender: FDA-Public Use
  Company Number: 2015US0464

PATIENT
  Age: 7 Year
  Sex: Female
  Weight: 18 kg

DRUGS (10)
  1. KINERET [Suspect]
     Active Substance: ANAKINRA
     Indication: PUSTULAR PSORIASIS
     Route: 058
     Dates: start: 20150618, end: 20150723
  2. FOLIC ACID. [Concomitant]
     Active Substance: FOLIC ACID
  3. ZOFRAN (ONDANSETRON) [Concomitant]
  4. LYRICA [Concomitant]
     Active Substance: PREGABALIN
  5. METHOTREXATE [Concomitant]
     Active Substance: METHOTREXATE
  6. NAPROXEN. [Concomitant]
     Active Substance: NAPROXEN
  7. ULTRAM (TRAMADOL HYDROCHLORIDE) [Concomitant]
     Active Substance: TRAMADOL HYDROCHLORIDE
  8. GABAPENTIN. [Concomitant]
     Active Substance: GABAPENTIN
  9. HYDROCODONE [Concomitant]
     Active Substance: HYDROCODONE
  10. CALCIUM CARBONATE. [Concomitant]
     Active Substance: CALCIUM CARBONATE

REACTIONS (6)
  - Photophobia [None]
  - Scleral hyperaemia [None]
  - Injection site pain [None]
  - Blindness transient [None]
  - Blepharitis [None]
  - Vision blurred [None]

NARRATIVE: CASE EVENT DATE: 20150706
